FAERS Safety Report 14741285 (Version 1)
Quarter: 2018Q2

REPORT INFORMATION
  Report Type: Spontaneous
  Country: FR (occurrence: FR)
  Receive Date: 20180410
  Receipt Date: 20180410
  Transmission Date: 20180711
  Serious: Yes (Death)
  Sender: FDA-Public Use
  Company Number: FR-CORDEN PHARMA LATINA S.P.A.-FR-2018COR000020

PATIENT

DRUGS (4)
  1. VEPESID [Suspect]
     Active Substance: ETOPOSIDE
     Indication: NON-HODGKIN^S LYMPHOMA
     Dosage: UNK, BOLUS AT DAYS 1 TO 3 FOR MINIMUM OF 2 CYCLES
     Route: 042
  2. DEXAMETHASONE. [Suspect]
     Active Substance: DEXAMETHASONE
     Indication: NON-HODGKIN^S LYMPHOMA
     Dosage: 40 MG/D AT DAYS 1-4 FOR SIX TO EIGHT CYCLES EVERY THREE WEEKS
     Route: 048
  3. CYTARABINE. [Suspect]
     Active Substance: CYTARABINE
     Indication: NON-HODGKIN^S LYMPHOMA
     Dosage: UNK, BOLUS AT DAYS 1 AND 2 FOR MINIMUM 2 CYLCLES
     Route: 042
  4. RITUXIMAB. [Suspect]
     Active Substance: RITUXIMAB
     Indication: NON-HODGKIN^S LYMPHOMA
     Dosage: 375 MG/M2 AT DAY 1 FOR SIX TO EIGHT CYCLES EVERY THREE WEEKS
     Route: 042

REACTIONS (1)
  - Febrile neutropenia [Fatal]
